FAERS Safety Report 18521006 (Version 4)
Quarter: 2021Q2

REPORT INFORMATION
  Report Type: Spontaneous
  Country: US (occurrence: US)
  Receive Date: 20201119
  Receipt Date: 20210603
  Transmission Date: 20210717
  Serious: No
  Sender: FDA-Public Use
  Company Number: US-SA-2020SA324506

PATIENT
  Sex: Female

DRUGS (14)
  1. DUPIXENT [Suspect]
     Active Substance: DUPILUMAB
     Indication: ASTHMA
     Dosage: 300 MG, QOW
     Route: 058
  2. OXYCODONE [Concomitant]
     Active Substance: OXYCODONE
  3. TRULICITY [Concomitant]
     Active Substance: DULAGLUTIDE
  4. BUDESONIDE. [Concomitant]
     Active Substance: BUDESONIDE
  5. BAQSIMI [Concomitant]
     Active Substance: GLUCAGON
  6. HUMALOG [Concomitant]
     Active Substance: INSULIN LISPRO
  7. FENTANYL. [Concomitant]
     Active Substance: FENTANYL
  8. IRON [Concomitant]
     Active Substance: IRON
  9. LEVEMIR [Concomitant]
     Active Substance: INSULIN DETEMIR
  10. BUPROPION. [Concomitant]
     Active Substance: BUPROPION
  11. CLOPIDOGREL [Concomitant]
     Active Substance: CLOPIDOGREL BISULFATE
  12. MONTELUKAST [Concomitant]
     Active Substance: MONTELUKAST SODIUM
  13. TRAVOPROST. [Concomitant]
     Active Substance: TRAVOPROST
  14. LEVOXYL [Concomitant]
     Active Substance: LEVOTHYROXINE SODIUM

REACTIONS (5)
  - Needle issue [Unknown]
  - Respiratory disorder [Not Recovered/Not Resolved]
  - Inappropriate schedule of product administration [Unknown]
  - Injection site pain [Unknown]
  - Wrong technique in device usage process [Unknown]
